FAERS Safety Report 11692083 (Version 1)
Quarter: 2015Q4

REPORT INFORMATION
  Report Type: Spontaneous
  Country: CN (occurrence: CN)
  Receive Date: 20151103
  Receipt Date: 20151103
  Transmission Date: 20160304
  Serious: Yes (Other)
  Sender: FDA-Public Use
  Company Number: CN-PFIZER INC-2015358136

PATIENT
  Age: 42 Year
  Sex: Female
  Weight: 68 kg

DRUGS (6)
  1. CYCLOPHOSPHAMIDE. [Suspect]
     Active Substance: CYCLOPHOSPHAMIDE
     Indication: INVASIVE DUCTAL BREAST CARCINOMA
  2. PHARMORUBICIN [Suspect]
     Active Substance: EPIRUBICIN
     Indication: INVASIVE DUCTAL BREAST CARCINOMA
  3. CYCLOPHOSPHAMIDE. [Suspect]
     Active Substance: CYCLOPHOSPHAMIDE
     Indication: PAGET^S DISEASE OF NIPPLE
     Dosage: 500 MG/M2, D1, Q21 DAYS X 6-8 CYCLES
     Dates: start: 20150127
  4. DOCETAXEL. [Suspect]
     Active Substance: DOCETAXEL
     Indication: INVASIVE DUCTAL BREAST CARCINOMA
  5. DOCETAXEL. [Suspect]
     Active Substance: DOCETAXEL
     Indication: PAGET^S DISEASE OF NIPPLE
     Dosage: 75 MG/M2, D2, Q21 DAYS X 6-8 CYCLES
     Dates: start: 20150127
  6. PHARMORUBICIN [Suspect]
     Active Substance: EPIRUBICIN
     Indication: PAGET^S DISEASE OF NIPPLE
     Dosage: 90 MG/M2, D1, 1X/DAY, Q21 DAYS X 6-8 CYCLES
     Route: 041
     Dates: start: 20150127

REACTIONS (1)
  - Hepatic function abnormal [Recovered/Resolved]

NARRATIVE: CASE EVENT DATE: 20150216
